FAERS Safety Report 6146719-6 (Version None)
Quarter: 2009Q2

REPORT INFORMATION
  Report Type: 
  Country: None (occurrence: None)
  Receive Date: 20090403
  Receipt Date: 20090403
  Transmission Date: 20091009
  Serious: No
  Sender: FDA-Public Use
  Company Number: None

PATIENT
  Age: 47 Year
  Sex: Male

DRUGS (1)
  1. VARENICLINE [Suspect]
     Indication: NICOTINE DEPENDENCE
     Dates: start: 20090309, end: 20090401

REACTIONS (4)
  - ABDOMINAL PAIN UPPER [None]
  - FEAR [None]
  - HEPATIC CIRRHOSIS [None]
  - SUICIDAL IDEATION [None]
